FAERS Safety Report 10637332 (Version 1)
Quarter: 2014Q4

REPORT INFORMATION
  Report Type: Spontaneous
  Country: US (occurrence: None)
  Receive Date: 20141203
  Receipt Date: 20141203
  Transmission Date: 20150529
  Serious: Yes (Hospitalization)
  Sender: FDA-Public Use
  Company Number: None

PATIENT
  Age: 48 Year
  Sex: Male
  Weight: 80.6 kg

DRUGS (1)
  1. AMBRISENTAN [Suspect]
     Active Substance: AMBRISENTAN
     Indication: PULMONARY HYPERTENSION
     Dates: start: 20140516, end: 20140526

REACTIONS (5)
  - Dyspnoea exertional [None]
  - Anaemia [None]
  - Chest discomfort [None]
  - Abdominal distension [None]
  - Cardiac failure congestive [None]

NARRATIVE: CASE EVENT DATE: 20140526
